FAERS Safety Report 6664277-4 (Version None)
Quarter: 2010Q2

REPORT INFORMATION
  Report Type: 
  Country: None (occurrence: None)
  Receive Date: 20100401
  Receipt Date: 20100323
  Transmission Date: 20101027
  Serious: Yes (Hospitalization)
  Sender: FDA-Public Use
  Company Number: PHHY2010FR18890

PATIENT
  Sex: Female

DRUGS (3)
  1. METHERGINE [Suspect]
     Dosage: 0.125 MG, TID
     Route: 048
     Dates: start: 20100220, end: 20100224
  2. TRIPHASIL-21 [Concomitant]
     Dosage: 1 DF, DAILY
  3. DOXYCYCLINE [Concomitant]
     Dosage: UNK
     Dates: start: 20100220, end: 20100224

REACTIONS (2)
  - CEREBROVASCULAR SPASM [None]
  - PARAESTHESIA [None]
